FAERS Safety Report 8797673 (Version 1)
Quarter: 2012Q4

REPORT INFORMATION
  Report Type: 
  Country: DE (occurrence: DE)
  Receive Date: 20120920
  Receipt Date: 20120920
  Transmission Date: 20130627
  Serious: Yes (Death, Other)
  Sender: FDA-Public Use
  Company Number: DE-RANBAXY-2010R1-40166

PATIENT
  Age: 26 Year
  Sex: Male
  Weight: 113 kg

DRUGS (2)
  1. FENTANYL [Suspect]
     Indication: PAIN MANAGEMENT
     Dosage: 100micro g every third day
     Route: 065
  2. MORPHINE [Suspect]
     Indication: PAIN MANAGEMENT
     Dosage: unk
     Route: 048

REACTIONS (1)
  - Sleep apnoea syndrome [Recovering/Resolving]
